FAERS Safety Report 11444954 (Version 1)
Quarter: 2015Q3

REPORT INFORMATION
  Report Type: Report from Study
  Country: VE (occurrence: VE)
  Receive Date: 20150902
  Receipt Date: 20150902
  Transmission Date: 20151125
  Serious: Yes (Other)
  Sender: FDA-Public Use
  Company Number: PHHY2015VE084992

PATIENT
  Age: 68 Year
  Sex: Female

DRUGS (4)
  1. IMATINIB [Suspect]
     Active Substance: IMATINIB
     Indication: CHRONIC MYELOID LEUKAEMIA
     Dosage: 100 MG, UNK
     Route: 065
  2. GLIVEC [Suspect]
     Active Substance: IMATINIB MESYLATE
     Dosage: UNK, QD
     Route: 048
     Dates: end: 2015
  3. GLIVEC [Suspect]
     Active Substance: IMATINIB MESYLATE
     Indication: CHRONIC MYELOID LEUKAEMIA
     Dosage: 300 MG, QD
     Route: 048
     Dates: start: 20060709
  4. GLUCOPHAGE [Concomitant]
     Active Substance: METFORMIN HYDROCHLORIDE
     Indication: DIABETES MELLITUS MANAGEMENT
     Route: 065

REACTIONS (10)
  - Gastrointestinal pain [Recovered/Resolved]
  - Flatulence [Recovered/Resolved]
  - Diarrhoea [Recovering/Resolving]
  - Macular degeneration [Recovering/Resolving]
  - Abdominal pain [Recovered/Resolved]
  - Malaise [Recovering/Resolving]
  - Dyspepsia [Recovered/Resolved]
  - Drug intolerance [Unknown]
  - Abdominal pain upper [Unknown]
  - Pain [Recovering/Resolving]

NARRATIVE: CASE EVENT DATE: 201507
